FAERS Safety Report 6201920-8 (Version None)
Quarter: 2009Q2

REPORT INFORMATION
  Report Type: 
  Country: None (occurrence: None)
  Receive Date: 20090526
  Receipt Date: 20090518
  Transmission Date: 20091009
  Serious: Yes (Other)
  Sender: FDA-Public Use
  Company Number: PHHY2009BR19703

PATIENT
  Sex: Female
  Weight: 48 kg

DRUGS (2)
  1. EXELON [Suspect]
     Indication: MEMORY IMPAIRMENT
     Dosage: 9MG/5CM2, 1 PATCH/DAY
     Route: 062
     Dates: start: 20090401
  2. EXELON [Suspect]
     Indication: DEMENTIA

REACTIONS (6)
  - ABNORMAL BEHAVIOUR [None]
  - ABNORMAL DREAMS [None]
  - BEDRIDDEN [None]
  - CONDITION AGGRAVATED [None]
  - DEMENTIA [None]
  - SLEEP DISORDER [None]
